FAERS Safety Report 7918040-4 (Version None)
Quarter: 2011Q4

REPORT INFORMATION
  Report Type: 
  Country: None (occurrence: None)
  Receive Date: 20111114
  Receipt Date: 20111103
  Transmission Date: 20120403
  Serious: Yes (Hospitalization)
  Sender: FDA-Public Use
  Company Number: 1000025292

PATIENT
  Age: 66 Year
  Sex: Female
  Weight: 67 kg

DRUGS (4)
  1. MEMANTINE HYDROCHLORIDE [Suspect]
     Indication: DEMENTIA
     Dosage: 20 MG (20 MG, 1 IN 1 D), ORAL
     Route: 048
     Dates: end: 20111025
  2. PRAVASTATIN [Suspect]
     Indication: BLOOD CHOLESTEROL
     Dosage: 40 MG (40 MG, 1 IN 1 D), ORAL
     Route: 048
     Dates: end: 20111025
  3. AMLODIPINE [Suspect]
     Indication: BLOOD PRESSURE
     Dosage: 5 MG (5 MG, 1 IN 1 D), ORAL
     Route: 048
     Dates: end: 20111025
  4. RAMIPRIL [Suspect]
     Indication: BLOOD PRESSURE
     Dosage: 10 MG (10 MG, 1 IN 1 D), ORAL
     Route: 048
     Dates: end: 20111025

REACTIONS (2)
  - ABDOMINAL PAIN UPPER [None]
  - PANCREATITIS ACUTE [None]
